FAERS Safety Report 19641222 (Version 1)
Quarter: 2021Q3

REPORT INFORMATION
  Report Type: Spontaneous
  Country: CN (occurrence: CN)
  Receive Date: 20210729
  Receipt Date: 20210729
  Transmission Date: 20211014
  Serious: Yes (Other)
  Sender: FDA-Public Use
  Company Number: CN-BAXTER-2021BAX022332

PATIENT
  Age: 57 Year
  Sex: Female
  Weight: 56 kg

DRUGS (3)
  1. 20% MANNITOL INJECTION [Suspect]
     Active Substance: MANNITOL
     Indication: DIURETIC THERAPY
     Route: 041
     Dates: start: 20210701, end: 20210707
  2. CARBOHYDRATE AND ELECTROLYTE [Suspect]
     Active Substance: CARBOHYDRATES\ELECTROLYTES NOS
     Route: 041
     Dates: start: 20210714
  3. CARBOHYDRATE AND ELECTROLYTE [Suspect]
     Active Substance: CARBOHYDRATES\ELECTROLYTES NOS
     Indication: ELECTROLYTE SUBSTITUTION THERAPY
     Route: 041
     Dates: start: 20210701, end: 20210706

REACTIONS (2)
  - Pruritus [Recovering/Resolving]
  - Rash erythematous [Recovering/Resolving]

NARRATIVE: CASE EVENT DATE: 20210705
